FAERS Safety Report 23852818 (Version 1)
Quarter: 2024Q2

REPORT INFORMATION
  Report Type: Spontaneous
  Country: US (occurrence: None)
  Receive Date: 20240513
  Receipt Date: 20240513
  Transmission Date: 20240715
  Serious: Yes (Disabling, Other)
  Sender: FDA-Public Use
  Company Number: None

PATIENT
  Age: 86 Year
  Sex: Female
  Weight: 65.25 kg

DRUGS (1)
  1. ZYRTEC [Suspect]
     Active Substance: CETIRIZINE HYDROCHLORIDE
     Indication: Hypersensitivity
     Dosage: OTHER QUANTITY : 1 CAPSULE(S);?
     Route: 048

REACTIONS (4)
  - Product quality issue [None]
  - Dry mouth [None]
  - Swollen tongue [None]
  - Lymphadenopathy [None]

NARRATIVE: CASE EVENT DATE: 20240512
